FAERS Safety Report 4359737-5 (Version None)
Quarter: 2004Q2

REPORT INFORMATION
  Report Type: 
  Country: None (occurrence: None)
  Receive Date: 20040512
  Receipt Date: 20040426
  Transmission Date: 20050107
  Serious: Yes (Hospitalization)
  Sender: FDA-Public Use
  Company Number: DSA_24310_2004

PATIENT
  Age: 49 Year
  Sex: Female

DRUGS (2)
  1. LORAZEPAM [Suspect]
     Dosage: 12 MG ONCE PO
     Route: 048
     Dates: start: 20040420, end: 20040420
  2. TEMAZEPAM [Suspect]
     Dosage: 160 MG ONCE PO
     Route: 048
     Dates: start: 20040420, end: 20040420

REACTIONS (3)
  - FATIGUE [None]
  - INTENTIONAL OVERDOSE [None]
  - TACHYCARDIA [None]
